FAERS Safety Report 24558069 (Version 1)
Quarter: 2024Q4

REPORT INFORMATION
  Report Type: Spontaneous
  Country: US (occurrence: US)
  Receive Date: 20241028
  Receipt Date: 20241028
  Transmission Date: 20250114
  Serious: Yes (Other)
  Sender: MERCK
  Company Number: US-PFIZER INC-PV202400079771

PATIENT
  Age: 69 Year
  Sex: Female

DRUGS (2)
  1. TUCATINIB [Suspect]
     Active Substance: TUCATINIB
     Dosage: 250 MG, 2X/DAY (5 TABLETS EVERY 12 HOURS)
  2. KEYTRUDA [Suspect]
     Active Substance: PEMBROLIZUMAB
     Dosage: LOADING DOSE

REACTIONS (2)
  - Vomiting [Unknown]
  - Memory impairment [Unknown]
